FAERS Safety Report 7061102-7 (Version None)
Quarter: 2010Q4

REPORT INFORMATION
  Report Type: 
  Country: None (occurrence: None)
  Receive Date: 20101026
  Receipt Date: 20101025
  Transmission Date: 20110411
  Serious: Yes (Hospitalization)
  Sender: FDA-Public Use
  Company Number: IT-PFIZER INC-2010123978

PATIENT
  Age: 73 Year
  Sex: Male
  Weight: 85 kg

DRUGS (8)
  1. SUTENT [Suspect]
     Indication: RENAL CELL CARCINOMA
     Dosage: 37.5 MG, CYCLIC
     Route: 048
     Dates: start: 20100511, end: 20100912
  2. COTAREG ^NOVARTIS^ [Concomitant]
     Indication: HYPERTENSION
  3. AVODART [Concomitant]
  4. OMNIC [Concomitant]
  5. TORVAST [Concomitant]
  6. ASCRIPTIN [Concomitant]
  7. HUMALOG [Concomitant]
  8. LANSOX [Concomitant]

REACTIONS (3)
  - HYPERTENSION [None]
  - MALAISE [None]
  - TRANSIENT ISCHAEMIC ATTACK [None]
